FAERS Safety Report 6230924-4 (Version None)
Quarter: 2009Q2

REPORT INFORMATION
  Report Type: 
  Country: None (occurrence: None)
  Receive Date: 20090616
  Receipt Date: 20090605
  Transmission Date: 20091009
  Serious: Yes (Other)
  Sender: FDA-Public Use
  Company Number: PHHY2009BR22330

PATIENT
  Age: 35 Year
  Sex: Female

DRUGS (2)
  1. PARLODEL [Suspect]
     Indication: BREAST MASS
     Dosage: 2.5 MG, QHS
     Route: 048
  2. METAMUCIL [Concomitant]
     Indication: CONSTIPATION
     Dosage: UNK
     Route: 048

REACTIONS (7)
  - ABDOMINAL DISTENSION [None]
  - ABDOMINAL PAIN UPPER [None]
  - BREAST ENLARGEMENT [None]
  - MASS [None]
  - MOVEMENT DISORDER [None]
  - PAIN [None]
  - WEIGHT INCREASED [None]
